FAERS Safety Report 10651765 (Version 1)
Quarter: 2014Q4

REPORT INFORMATION
  Report Type: Spontaneous
  Country: US (occurrence: None)
  Receive Date: 20141212
  Receipt Date: 20141212
  Transmission Date: 20150529
  Serious: Yes (Hospitalization)
  Sender: FDA-Public Use
  Company Number: None

PATIENT
  Age: 71 Year
  Sex: Male
  Weight: 98 kg

DRUGS (1)
  1. INSULIN [Suspect]
     Active Substance: INSULIN NOS
     Indication: DIABETES MELLITUS
     Dosage: 15 UNITS ?AT BEDTIME ?SQ
     Route: 058
     Dates: start: 20100913

REACTIONS (5)
  - Product name confusion [None]
  - Dehydration [None]
  - Muscle spasms [None]
  - Hypoglycaemia unawareness [None]
  - Acute kidney injury [None]

NARRATIVE: CASE EVENT DATE: 20141202
